FAERS Safety Report 10026141 (Version 2)
Quarter: 2017Q2

REPORT INFORMATION
  Report Type: Spontaneous
  Country: US (occurrence: US)
  Receive Date: 20140320
  Receipt Date: 20170418
  Transmission Date: 20170829
  Serious: No
  Sender: FDA-Public Use
  Company Number: US-ALLERGAN-1401810US

PATIENT
  Sex: Female

DRUGS (3)
  1. LUMIGAN [Suspect]
     Active Substance: BIMATOPROST
     Indication: GLAUCOMA
     Dosage: 2 GTT, QHS
     Route: 047
  2. AZOPT [Concomitant]
     Active Substance: BRINZOLAMIDE
     Indication: GLAUCOMA
  3. LIPITOR [Concomitant]
     Active Substance: ATORVASTATIN CALCIUM
     Indication: HYPERLIPIDAEMIA
     Dosage: 20 MG, UNK
     Route: 048

REACTIONS (6)
  - Cataract [Unknown]
  - Corneal abrasion [Unknown]
  - Dark circles under eyes [Not Recovered/Not Resolved]
  - Eyelid ptosis [Unknown]
  - Eye irritation [Recovered/Resolved]
  - Eye pain [Recovered/Resolved]

NARRATIVE: CASE EVENT DATE: 2014
